FAERS Safety Report 5528167-2 (Version None)
Quarter: 2007Q4

REPORT INFORMATION
  Report Type: 
  Country: None (occurrence: None)
  Receive Date: 20071128
  Receipt Date: 20071119
  Transmission Date: 20080405
  Serious: Yes (Other)
  Sender: FDA-Public Use
  Company Number: US-PFIZER INC-2007046184

PATIENT
  Sex: Female

DRUGS (4)
  1. BEXTRA [Suspect]
     Indication: BACK PAIN
     Route: 048
  2. BEXTRA [Suspect]
     Indication: HYPOAESTHESIA
  3. BEXTRA [Suspect]
     Indication: PELVIC PAIN
  4. BEXTRA [Suspect]
     Indication: FLANK PAIN

REACTIONS (1)
  - STEVENS-JOHNSON SYNDROME [None]
